FAERS Safety Report 18336337 (Version 1)
Quarter: 2020Q4

REPORT INFORMATION
  Report Type: Spontaneous
  Country: DE (occurrence: DE)
  Receive Date: 20201001
  Receipt Date: 20201001
  Transmission Date: 20210113
  Serious: Yes (Death, Hospitalization)
  Sender: FDA-Public Use
  Company Number: DE-TEVA-2020-DE-1832300

PATIENT
  Age: 81 Year
  Sex: Male
  Weight: 99 kg

DRUGS (10)
  1. TORASEMID [Concomitant]
     Active Substance: TORSEMIDE
     Dosage: 4 DOSAGE FORMS DAILY; 20 MG, 2-2-0-0
  2. PREGABALIN. [Concomitant]
     Active Substance: PREGABALIN
     Dosage: 225 MILLIGRAM DAILY;  1-1-1-0
  3. METAMIZOL [Concomitant]
     Active Substance: METAMIZOLE SODIUM
     Dosage: 1500 MILLIGRAM DAILY; 1-1-1-0
  4. DULOXETIN [Suspect]
     Active Substance: DULOXETINE
     Dosage: 60 MILLIGRAM DAILY; 1-0-0-0
  5. KALINOR - RETARD P [Concomitant]
     Dosage: 600 MG, 2-0-1-0
  6. COLECALCIFEROL (VITAMIN D) [Concomitant]
     Dosage: 1000 IU (INTERNATIONAL UNIT) DAILY; 1000 IU, 1-0-0-0
  7. APIXABAN [Concomitant]
     Active Substance: APIXABAN
     Dosage: 5 MILLIGRAM DAILY; 2.5 MG, 1-0-1-0
  8. RAMIPRIL. [Concomitant]
     Active Substance: RAMIPRIL
     Dosage: 10 MILLIGRAM DAILY;  1-0-1-0
  9. INSULIN HUMAN [Concomitant]
     Active Substance: INSULIN HUMAN
     Dosage: NK MG, ACCORDING TO THE SCHEME
  10. BISOPROLOL [Concomitant]
     Active Substance: BISOPROLOL
     Dosage: 10 MILLIGRAM DAILY; 1-0-1-0

REACTIONS (10)
  - Condition aggravated [Unknown]
  - Impaired healing [Unknown]
  - Weight increased [Unknown]
  - Abdominal distension [Unknown]
  - Pollakiuria [Unknown]
  - Ocular icterus [Unknown]
  - Wound [Unknown]
  - Orthopnoea [Unknown]
  - General physical health deterioration [Unknown]
  - Product prescribing error [Unknown]
